FAERS Safety Report 8044019-0 (Version None)
Quarter: 2011Q4

REPORT INFORMATION
  Report Type: 
  Country: None (occurrence: None)
  Receive Date: 20111202
  Receipt Date: 20101104
  Transmission Date: 20120403
  Serious: Yes (Disabling)
  Sender: FDA-Public Use
  Company Number: WAES 1007USA03939

PATIENT
  Age: 62 Year
  Sex: Female
  Weight: 66.6788 kg

DRUGS (3)
  1. FOSAMAX [Suspect]
     Dosage: 70 MG/DAILY/PO
     Route: 048
     Dates: start: 20020202, end: 20021101
  2. FOSAMAX [Suspect]
     Dosage: 10 MG/DAILY/PO
     Route: 048
     Dates: start: 20001110, end: 20010401
  3. ACTONEL [Suspect]
     Indication: OSTEOPOROSIS PROPHYLAXIS
     Dosage: PO
     Route: 048
     Dates: start: 20040901, end: 20061201

REACTIONS (21)
  - CERVICAL POLYP [None]
  - ATROPHIC VULVOVAGINITIS [None]
  - SMEAR CERVIX ABNORMAL [None]
  - OSTEONECROSIS OF JAW [None]
  - ALOPECIA [None]
  - SENILE OSTEOPOROSIS [None]
  - VITAMIN D DEFICIENCY [None]
  - HYPERLIPIDAEMIA [None]
  - FALL [None]
  - TREATMENT NONCOMPLIANCE [None]
  - TINNITUS [None]
  - SKIN DISORDER [None]
  - ROTATOR CUFF SYNDROME [None]
  - ELECTROCARDIOGRAM T WAVE INVERSION [None]
  - TRIGGER FINGER [None]
  - BONE DENSITY DECREASED [None]
  - CONSTIPATION [None]
  - OSTEOPENIA [None]
  - ABDOMINAL DISCOMFORT [None]
  - EXOSTOSIS [None]
  - LIBIDO DISORDER [None]
